FAERS Safety Report 10099236 (Version 3)
Quarter: 2015Q3

REPORT INFORMATION
  Report Type: Spontaneous
  Country: US (occurrence: US)
  Receive Date: 20140423
  Receipt Date: 20150813
  Transmission Date: 20151125
  Serious: No
  Sender: FDA-Public Use
  Company Number: US-GILEAD-2013-0068272

PATIENT
  Age: 58 Year
  Sex: Female

DRUGS (2)
  1. LETAIRIS [Suspect]
     Active Substance: AMBRISENTAN
     Indication: SYSTEMIC SCLEROSIS
     Dosage: 5 MG, QD
     Route: 048
     Dates: start: 20121130
  2. ADCIRCA [Concomitant]
     Active Substance: TADALAFIL

REACTIONS (6)
  - Swelling face [Unknown]
  - Unevaluable event [Unknown]
  - Oedema [Unknown]
  - Oedema peripheral [Unknown]
  - Dyspnoea [Unknown]
  - Sinusitis [Unknown]
